FAERS Safety Report 22963864 (Version 3)
Quarter: 2024Q1

REPORT INFORMATION
  Report Type: Report from Study
  Country: US (occurrence: US)
  Receive Date: 20230921
  Receipt Date: 20240108
  Transmission Date: 20240410
  Serious: No
  Sender: FDA-Public Use
  Company Number: US-002147023-NVSC2023US200214

PATIENT
  Sex: Female

DRUGS (1)
  1. KESIMPTA [Suspect]
     Active Substance: OFATUMUMAB
     Indication: Product used for unknown indication
     Dosage: 20 MG, EVERY 2 WEEKS
     Route: 058

REACTIONS (6)
  - Heart rate decreased [Unknown]
  - Fall [Unknown]
  - Pain in extremity [Unknown]
  - Sneezing [Unknown]
  - Dizziness [Unknown]
  - Injection site pain [Unknown]
